FAERS Safety Report 22331636 (Version 1)
Quarter: 2023Q2

REPORT INFORMATION
  Report Type: Spontaneous
  Country: US (occurrence: US)
  Receive Date: 20230517
  Receipt Date: 20230517
  Transmission Date: 20230721
  Serious: No
  Sender: FDA-Public Use
  Company Number: US-SA-SAC20230517000169

PATIENT
  Sex: Female

DRUGS (16)
  1. TAXOTERE [Suspect]
     Active Substance: DOCETAXEL
     Indication: Breast cancer
     Dosage: UNK
  2. TYLENOL [Concomitant]
     Active Substance: ACETAMINOPHEN
  3. HERCEPTIN [Concomitant]
     Active Substance: TRASTUZUMAB
  4. PERJETA [Concomitant]
     Active Substance: PERTUZUMAB
  5. XELODA [Concomitant]
     Active Substance: CAPECITABINE
  6. LOPROX [Concomitant]
     Active Substance: CICLOPIROX\CICLOPIROX OLAMINE
  7. TEMOVATE [Concomitant]
     Active Substance: CLOBETASOL PROPIONATE
  8. FAMOTIDINE [Concomitant]
     Active Substance: FAMOTIDINE
  9. GABAPENTIN [Concomitant]
     Active Substance: GABAPENTIN
  10. KEPPRA XR [Concomitant]
     Active Substance: LEVETIRACETAM
  11. LIDODERM [Concomitant]
     Active Substance: LIDOCAINE
  12. ONDANSETRON [Concomitant]
     Active Substance: ONDANSETRON
  13. GLYCOLIC ACID;TOCOPHEROL [Concomitant]
  14. COMPAZINE [Concomitant]
     Active Substance: PROCHLORPERAZINE MALEATE
  15. TUKYSA [Concomitant]
     Active Substance: TUCATINIB
  16. HEPARIN [Concomitant]
     Active Substance: HEPARIN SODIUM

REACTIONS (1)
  - Diarrhoea [Unknown]
